FAERS Safety Report 10078542 (Version 2)
Quarter: 2014Q2

REPORT INFORMATION
  Report Type: Spontaneous
  Country: GB (occurrence: GB)
  Receive Date: 20140415
  Receipt Date: 20140415
  Transmission Date: 20141212
  Serious: Yes (Other)
  Sender: FDA-Public Use
  Company Number: GB-JNJFOC-20140318161

PATIENT
  Sex: Female

DRUGS (1)
  1. EVRA [Suspect]
     Indication: PRODUCT USED FOR UNKNOWN INDICATION
     Route: 062

REACTIONS (8)
  - Kidney infection [Unknown]
  - Back pain [Unknown]
  - Nausea [Unknown]
  - Abdominal pain upper [Unknown]
  - Wrong technique in drug usage process [Unknown]
  - Incorrect dose administered [Unknown]
  - Malaise [Unknown]
  - Vaginal discharge [Unknown]
